FAERS Safety Report 15231983 (Version 5)
Quarter: 2018Q3

REPORT INFORMATION
  Report Type: Spontaneous
  Country: US (occurrence: US)
  Receive Date: 20180802
  Receipt Date: 20180829
  Transmission Date: 20181010
  Serious: Yes (Hospitalization, Other)
  Sender: FDA-Public Use
  Company Number: US-PFIZER INC-2018305493

PATIENT
  Age: 41 Year
  Sex: Male

DRUGS (1)
  1. CHANTIX [Suspect]
     Active Substance: VARENICLINE TARTRATE
     Indication: SMOKING CESSATION THERAPY
     Dosage: 1 MG, 2X/DAY
     Route: 048
     Dates: start: 20121211, end: 201612

REACTIONS (20)
  - Spinal fracture [Unknown]
  - Feeling abnormal [Unknown]
  - Intentional overdose [Unknown]
  - Cervical vertebral fracture [Unknown]
  - Abnormal behaviour [Unknown]
  - Aggression [Unknown]
  - Suicide attempt [Recovered/Resolved with Sequelae]
  - Road traffic accident [Unknown]
  - Mental disorder [Not Recovered/Not Resolved]
  - Head discomfort [Unknown]
  - Depression [Unknown]
  - Mania [Unknown]
  - Hypoacusis [Unknown]
  - Hostility [Unknown]
  - Panic reaction [Unknown]
  - Confusional state [Unknown]
  - Suicidal ideation [Recovered/Resolved with Sequelae]
  - Hallucination [Unknown]
  - Anxiety [Unknown]
  - Paranoia [Unknown]

NARRATIVE: CASE EVENT DATE: 201212
